FAERS Safety Report 5826587-X (Version None)
Quarter: 2008Q3

REPORT INFORMATION
  Report Type: 
  Country: None (occurrence: None)
  Receive Date: 20080728
  Receipt Date: 20080728
  Transmission Date: 20090109
  Serious: Yes (Other)
  Sender: FDA-Public Use
  Company Number: None

PATIENT
  Sex: Female
  Weight: 65.7716 kg

DRUGS (1)
  1. YAZ [Suspect]
     Indication: CONTRACEPTION
     Dosage: ONE PILL NIGHTLY PO
     Route: 048
     Dates: start: 20080501, end: 20080725

REACTIONS (6)
  - ANGER [None]
  - CRYING [None]
  - EMOTIONAL DISORDER [None]
  - MENTAL DISORDER [None]
  - MOOD SWINGS [None]
  - THINKING ABNORMAL [None]
